FAERS Safety Report 13480080 (Version 1)
Quarter: 2017Q2

REPORT INFORMATION
  Report Type: Spontaneous
  Country: US (occurrence: US)
  Receive Date: 20170424
  Receipt Date: 20170424
  Transmission Date: 20170830
  Serious: No
  Sender: FDA-Public Use
  Company Number: GXBR2016US002056

PATIENT
  Sex: Female
  Weight: 47.62 kg

DRUGS (3)
  1. OXAZEPAM CAPSULES USP [Suspect]
     Active Substance: OXAZEPAM
     Indication: PANIC ATTACK
  2. OXAZEPAM CAPSULES USP [Suspect]
     Active Substance: OXAZEPAM
     Indication: ANXIETY DISORDER
     Dosage: 10 MG, QID
     Route: 048
  3. TOPROL XL [Concomitant]
     Active Substance: METOPROLOL SUCCINATE
     Indication: HYPERTENSION
     Dosage: UNK DF, UNK
     Route: 065

REACTIONS (2)
  - Anxiety [Not Recovered/Not Resolved]
  - Drug effect decreased [Not Recovered/Not Resolved]
